FAERS Safety Report 23064539 (Version 1)
Quarter: 2023Q4

REPORT INFORMATION
  Report Type: Spontaneous
  Country: RO (occurrence: RO)
  Receive Date: 20231013
  Receipt Date: 20231013
  Transmission Date: 20240110
  Serious: Yes (Other)
  Sender: FDA-Public Use
  Company Number: None

PATIENT
  Age: 53 Year
  Sex: Male

DRUGS (6)
  1. METHOTREXATE [Suspect]
     Active Substance: METHOTREXATE
     Indication: Arthropathy
     Dosage: 15 MG, WEEKLY
     Dates: start: 200808
  2. SECUKINUMAB [Suspect]
     Active Substance: SECUKINUMAB
     Indication: Arthropathy
     Dosage: 300 MG, MONTHLY
     Dates: start: 202101, end: 202301
  3. SULFASALAZINE [Suspect]
     Active Substance: SULFASALAZINE
     Indication: Arthropathy
     Dosage: 2 G, DAILY
     Dates: start: 201405, end: 201908
  4. ETANERCEPT [Suspect]
     Active Substance: ETANERCEPT
     Indication: Arthropathy
     Dosage: 50 MG, WEEKLY
     Dates: start: 201501, end: 202008
  5. ADALIMUMAB [Suspect]
     Active Substance: ADALIMUMAB
     Indication: Arthropathy
     Dosage: 40 MG, 2 WEEKS
     Dates: start: 200806, end: 201412
  6. METHOTREXATE [Suspect]
     Active Substance: METHOTREXATE
     Indication: Arthropathy
     Dosage: 20 MG, WEEKLY
     Dates: start: 201309

REACTIONS (5)
  - C-reactive protein increased [Unknown]
  - Haemoglobin decreased [Unknown]
  - Psoriatic arthropathy [Unknown]
  - Red blood cell sedimentation rate increased [Unknown]
  - Blood glucose increased [Unknown]

NARRATIVE: CASE EVENT DATE: 20230101
